FAERS Safety Report 20194222 (Version 1)
Quarter: 2021Q4

REPORT INFORMATION
  Report Type: Spontaneous
  Country: US (occurrence: None)
  Receive Date: 20211216
  Receipt Date: 20211216
  Transmission Date: 20220303
  Serious: Yes (Hospitalization)
  Sender: FDA-Public Use
  Company Number: None

PATIENT
  Sex: Female

DRUGS (11)
  1. KESIMPTA [Suspect]
     Active Substance: OFATUMUMAB
     Indication: Multiple sclerosis
     Route: 058
     Dates: start: 20211026
  2. AMITRIPTYLIN TAB [Concomitant]
  3. BALZIVA [Concomitant]
  4. DALFAMPRIDIN [Concomitant]
  5. ESCITALOPRAM [Concomitant]
  6. GABAPENTIN CAP [Concomitant]
  7. LISINOPRIL [Concomitant]
     Active Substance: LISINOPRIL
  8. METHENAM HIP [Concomitant]
  9. METHYLPR SS [Concomitant]
  10. TRIAMT/HCTZ [Concomitant]
  11. VITAMIN D [Concomitant]

REACTIONS (1)
  - Urinary tract infection [None]
